FAERS Safety Report 4876469-5 (Version None)
Quarter: 2005Q4

REPORT INFORMATION
  Report Type: 
  Country: None (occurrence: None)
  Receive Date: 20051206
  Receipt Date: 20051019
  Transmission Date: 20060501
  Serious: No
  Sender: FDA-Public Use
  Company Number: USA0510111409

PATIENT
  Age: 86 Year
  Sex: Female
  Weight: 64 kg

DRUGS (2)
  1. CYMBALTA [Suspect]
     Indication: DEPRESSION
     Dosage: 30 MG DAY
     Dates: start: 20050921
  2. TOPROL-XL [Concomitant]

REACTIONS (6)
  - DIZZINESS [None]
  - FAECES DISCOLOURED [None]
  - HYPERHIDROSIS [None]
  - PRURITUS [None]
  - STOMACH DISCOMFORT [None]
  - VOMITING [None]
